FAERS Safety Report 8298992-6 (Version None)
Quarter: 2012Q2

REPORT INFORMATION
  Report Type: 
  Country: None (occurrence: None)
  Receive Date: 20120419
  Receipt Date: 20120410
  Transmission Date: 20120825
  Serious: Yes (Death)
  Sender: FDA-Public Use
  Company Number: US-MYLANLABS-2010S1011045

PATIENT
  Age: 35 Year
  Sex: Female
  Weight: 55.79 kg

DRUGS (19)
  1. AMANTADINE HCL [Concomitant]
     Route: 048
  2. ZOLOFT [Concomitant]
     Indication: DEPRESSION
     Route: 048
  3. VALTREX [Concomitant]
  4. NAPROSYN [Concomitant]
     Indication: PAIN
     Dosage: TAKE 1 TAB ORALLY BID PRN
     Route: 048
  5. RITALIN [Concomitant]
     Route: 048
  6. CHANTIX [Concomitant]
     Route: 048
  7. FENTANYL-100 [Suspect]
     Indication: PAIN
     Dosage: Q72HR
     Route: 062
  8. BACLOFEN [Concomitant]
     Dosage: ONE OR TWO TABS TWICE DAILY AS NEEDED
     Route: 048
  9. METHYLPREDNISOLONE [Concomitant]
     Indication: OPTIC NEURITIS
     Dosage: EVERY 3 MONTHS
     Route: 042
  10. METHYLPHENIDATE [Concomitant]
  11. IMITREX [Concomitant]
     Indication: HEADACHE
     Route: 048
  12. PROVIGIL [Concomitant]
     Indication: FATIGUE
     Route: 048
  13. BETHANECHOL CHLORIDE [Concomitant]
     Route: 048
  14. NORTRIPTYLINE HYDROCHLORIDE [Concomitant]
     Indication: MUSCLE SPASMS
     Route: 048
  15. CLONAZEPAM [Concomitant]
     Indication: ANXIETY
     Dosage: 1 TABLET PO QD PRN
     Route: 048
  16. AMBIEN [Concomitant]
     Route: 048
  17. NEURONTIN [Concomitant]
  18. TILIA FE [Concomitant]
  19. WELLBUTRIN SR [Concomitant]
     Route: 048

REACTIONS (2)
  - CARDIAC ARREST [None]
  - TOXICITY TO VARIOUS AGENTS [None]
